FAERS Safety Report 8444903-X (Version None)
Quarter: 2012Q2

REPORT INFORMATION
  Report Type: 
  Country: None (occurrence: None)
  Receive Date: 20120618
  Receipt Date: 20120613
  Transmission Date: 20120825
  Serious: Yes (Death, Life-Threatening, Hospitalization)
  Sender: FDA-Public Use
  Company Number: JP-ASTRAZENECA-2012SE36459

PATIENT
  Age: 82 Year
  Sex: Male

DRUGS (8)
  1. CLINDAMYCIN [Concomitant]
     Dates: start: 20120516, end: 20120520
  2. MEROPENEM [Suspect]
     Indication: SEPSIS
     Route: 042
     Dates: start: 20120331, end: 20120409
  3. CONCENTRATED HUMAN BLOOD PLATELET [Concomitant]
     Dates: start: 20120516, end: 20120528
  4. CONCENTRATED HUMAN RED BLOOD CELLS [Concomitant]
     Dates: start: 20120419, end: 20120528
  5. MEROPENEM [Suspect]
     Route: 042
     Dates: start: 20120521, end: 20120521
  6. MEROPENEM [Suspect]
     Route: 042
     Dates: start: 20120516, end: 20120516
  7. MEROPENEM [Suspect]
     Route: 042
     Dates: start: 20120517, end: 20120520
  8. MEROPENEM [Suspect]
     Route: 042
     Dates: start: 20120522, end: 20120528

REACTIONS (2)
  - DEPRESSED LEVEL OF CONSCIOUSNESS [None]
  - THROMBOCYTOPENIA [None]
